FAERS Safety Report 21054584 (Version 3)
Quarter: 2022Q3

REPORT INFORMATION
  Report Type: Report from Study
  Country: US (occurrence: US)
  Receive Date: 20220707
  Receipt Date: 20220721
  Transmission Date: 20221027
  Serious: Yes (Hospitalization, Other)
  Sender: FDA-Public Use
  Company Number: US-BRISTOL-MYERS SQUIBB COMPANY-2022-068223

PATIENT
  Age: 38 Year
  Sex: Female
  Weight: 64.5 kg

DRUGS (8)
  1. MORPHINE SULFATE [Concomitant]
     Active Substance: MORPHINE SULFATE
     Indication: Product used for unknown indication
     Dosage: 1DOSAGE FORM= 1 TAB?TAKE 1 TABLET (30 MG) BY MOUTH EVERY 8 HOURS. FOR USE 6/23/22-7/23/22?MORPHINE S
     Route: 065
  2. CALCIUM CARBONATE [Concomitant]
     Active Substance: CALCIUM CARBONATE
     Indication: Dyspepsia
     Dosage: 500 MG CHEWABLE?1 DF= 2 TABLETS?2 TABLETS BY CHEW ROUTE AS NEEDED FOR HEARTBURN.
     Route: 065
  3. LIDOCAINE\PRILOCAINE [Concomitant]
     Active Substance: LIDOCAINE\PRILOCAINE
     Indication: Product used for unknown indication
     Dosage: APPLY A QUARTER SIZE AMOUNT TOPICALLY TO PORT SITE 30-60 MINUTES PRIOR TO ACCESS AND COVER WITH PLAS
     Route: 061
  4. NALOXONE [Concomitant]
     Active Substance: NALOXONE
     Indication: Product used for unknown indication
     Dosage: NALOXONE (NARCAN) 4 MG/0.1 ML NASAL SPRAY?PLACE TIP OF NOZZLE IN EITHER NOSTRIL, PRESS PLUNGER FIRML
     Route: 045
  5. ZOFRAN [Concomitant]
     Active Substance: ONDANSETRON HYDROCHLORIDE
     Indication: Nausea
     Dosage: 1 DF= 1 TAB?NDANSETRON (ZOFRAN) 4 MG TABLET?TAKE 1 TABLET (4 MG) ?BY MOUTH EVERY 8 HOURS AS NEEDED F
     Route: 065
  6. OXYCODONE [Concomitant]
     Active Substance: OXYCODONE
     Indication: Pain
     Dosage: 1 DF= 1 TAB?TAKE 1 TABLET (10 MG) ?BY MOUTH EVERY 4 HOURS AS NEEDED FOR SEVERE PAIN MAX 5/DAY). FOR
     Route: 065
  7. POLYETHYLENE GLYCOL 3350 [Concomitant]
     Active Substance: POLYETHYLENE GLYCOL 3350
     Indication: Constipation
     Dosage: TAKE 17 GRAMS BY MOUTH ONCE AS NEEDED (CONSTIPATION, ?2ND LINE). MIX 17 GRAMS OF POWDER (UP TO LINE
     Route: 065
  8. SENNA [Concomitant]
     Active Substance: SENNA LEAF\SENNOSIDES\SENNOSIDES A AND B
     Indication: Constipation
     Dosage: TAKE 8.6 MG BY MOUTH DAILY AS NEEDED (CONSTIPATION)
     Route: 065

REACTIONS (1)
  - Pneumonitis [Not Recovered/Not Resolved]

NARRATIVE: CASE EVENT DATE: 20220628
